FAERS Safety Report 24534542 (Version 1)
Quarter: 2024Q4

REPORT INFORMATION
  Report Type: Spontaneous
  Country: AU (occurrence: AU)
  Receive Date: 20241022
  Receipt Date: 20241022
  Transmission Date: 20250114
  Serious: No
  Sender: JAZZ
  Company Number: AU-JAZZ PHARMACEUTICALS-2024-AU-017572

PATIENT
  Sex: Male

DRUGS (1)
  1. XYREM [Suspect]
     Active Substance: SODIUM OXYBATE
     Indication: Product used for unknown indication
     Dosage: 3 MILLIGRAM, BID

REACTIONS (2)
  - Hypertension [Unknown]
  - Night sweats [Unknown]
